FAERS Safety Report 12890233 (Version 2)
Quarter: 2016Q4

REPORT INFORMATION
  Report Type: Other
  Country: US (occurrence: US)
  Receive Date: 20161027
  Receipt Date: 20161114
  Transmission Date: 20170207
  Serious: Yes (Congenital Anomaly, Other)
  Sender: FDA-Public Use
  Company Number: US-ABBVIE-16P-163-1763748-00

PATIENT
  Age: 1 Year
  Sex: Male
  Weight: 11.28 kg

DRUGS (20)
  1. RIBAVIRIN. [Suspect]
     Active Substance: RIBAVIRIN
     Indication: EXPOSURE VIA BODY FLUID
     Route: 050
  2. HEPATITIS B VACCINE [Concomitant]
     Active Substance: HEPATITIS B VIRUS VACCINE
     Indication: PRODUCT USED FOR UNKNOWN INDICATION
     Route: 030
     Dates: start: 20150928, end: 20150928
  3. TRI VI SOL [Concomitant]
     Indication: PRODUCT USED FOR UNKNOWN INDICATION
     Dosage: 750-400-35 UNIT-MG/ML SOL(VITAMINS  A, C, D)
     Route: 048
  4. ZANTAC [Concomitant]
     Active Substance: RANITIDINE HYDROCHLORIDE
     Indication: PRODUCT USED FOR UNKNOWN INDICATION
     Route: 048
  5. PCV13 [Concomitant]
     Active Substance: PNEUMOCOCCAL 13-VALENT CONJUGATE VACCINE
     Indication: PRODUCT USED FOR UNKNOWN INDICATION
     Dosage: RIGHT THIGH
     Route: 030
     Dates: start: 20151130, end: 20151130
  6. PCV13 [Concomitant]
     Active Substance: PNEUMOCOCCAL 13-VALENT CONJUGATE VACCINE
     Dosage: VASTUS LATERALIS RIGHT
     Route: 030
     Dates: start: 20160318, end: 20160318
  7. ROTAVIRUS [Concomitant]
     Route: 047
     Dates: start: 20160318, end: 20160318
  8. ACETAMINOPHEN. [Concomitant]
     Active Substance: ACETAMINOPHEN
     Indication: PRODUCT USED FOR UNKNOWN INDICATION
     Route: 048
     Dates: start: 20151012
  9. PEGINTRON [Suspect]
     Active Substance: PEGINTERFERON ALFA-2B
     Indication: EXPOSURE VIA BODY FLUID
     Route: 050
  10. SIMETHICONE (DIMETHICONE) [Concomitant]
     Active Substance: DIMETHICONE
     Indication: PRODUCT USED FOR UNKNOWN INDICATION
     Dosage: HM GAS RELIEF INFANTS DROPS, EVERY 4-6 HRS
     Route: 048
  11. ROTAVIRUS [Concomitant]
     Indication: PRODUCT USED FOR UNKNOWN INDICATION
     Route: 048
     Dates: start: 20151130, end: 20151130
  12. HEPATITIS B VACCINE [Concomitant]
     Active Substance: HEPATITIS B VIRUS VACCINE
     Dosage: RIGHT THIGH
     Route: 030
     Dates: start: 20151130, end: 20151130
  13. IBUPROFEN. [Concomitant]
     Active Substance: IBUPROFEN
     Indication: PRODUCT USED FOR UNKNOWN INDICATION
     Route: 048
  14. SOVALDI [Suspect]
     Active Substance: SOFOSBUVIR
     Indication: EXPOSURE VIA BODY FLUID
     Route: 050
  15. HYTONE [Concomitant]
     Active Substance: HYDROCORTISONE
     Indication: PRODUCT USED FOR UNKNOWN INDICATION
     Dosage: ONE APPLICATION TO AFFECTED AREA
  16. VITAMIN K [Concomitant]
     Active Substance: PHYTONADIONE
     Indication: PRODUCT USED FOR UNKNOWN INDICATION
  17. AMOXICILLIN. [Concomitant]
     Active Substance: AMOXICILLIN
     Indication: PRODUCT USED FOR UNKNOWN INDICATION
     Dosage: 400 MG/ML
     Route: 048
  18. AMOXICILLIN. [Concomitant]
     Active Substance: AMOXICILLIN
     Indication: PRODUCT USED FOR UNKNOWN INDICATION
     Dosage: 250 MG/5 ML SUSPENSION
     Route: 048
     Dates: start: 20160529, end: 20160608
  19. DECADRON [Concomitant]
     Active Substance: DEXAMETHASONE
     Indication: PRODUCT USED FOR UNKNOWN INDICATION
     Route: 050
     Dates: start: 20160623
  20. LURIDE [Concomitant]
     Indication: PRODUCT USED FOR UNKNOWN INDICATION
     Route: 048

REACTIONS (82)
  - Ventricular septal defect [Unknown]
  - Abdominal pain [Unknown]
  - Vomiting [Unknown]
  - Decreased appetite [Unknown]
  - Ear discomfort [Unknown]
  - Pyrexia [Unknown]
  - Ear pain [Unknown]
  - Erythema [Unknown]
  - Ear infection [Unknown]
  - Otitis media acute [Unknown]
  - Tympanic membrane hyperaemia [Unknown]
  - Ear discomfort [Unknown]
  - Somnolence [Unknown]
  - Aorta hypoplasia [Unknown]
  - Conjunctivitis viral [Unknown]
  - Nasal congestion [Unknown]
  - Rhinorrhoea [Unknown]
  - Irritability [Unknown]
  - Cough [Unknown]
  - Rhinorrhoea [Unknown]
  - Tympanic membrane hyperaemia [Unknown]
  - Rhinorrhoea [Unknown]
  - Irritability [Unknown]
  - Swollen tongue [Unknown]
  - Flushing [Unknown]
  - Constipation [Unknown]
  - Drooling [Unknown]
  - Weight decreased [Unknown]
  - Nasal congestion [Unknown]
  - Vomiting [Unknown]
  - Cough [Unknown]
  - Tympanic membrane hyperaemia [Unknown]
  - Dermatitis diaper [Unknown]
  - Infection [Unknown]
  - Cough [Unknown]
  - Upper respiratory tract infection [Unknown]
  - Decreased activity [Unknown]
  - Diarrhoea [Unknown]
  - Lymphadenopathy [Unknown]
  - Teething [Unknown]
  - Gastrooesophageal reflux disease [Unknown]
  - Insomnia [Unknown]
  - Tongue disorder [Unknown]
  - Teething [Unknown]
  - Teething [Unknown]
  - Pyrexia [Unknown]
  - Ear discomfort [Unknown]
  - Eating disorder [Unknown]
  - Drooling [Unknown]
  - Physical examination abnormal [Unknown]
  - Syncope [Unknown]
  - Jaundice neonatal [Unknown]
  - Candida nappy rash [Unknown]
  - Gastrooesophageal reflux disease [Unknown]
  - Eating disorder [Unknown]
  - Constipation [Unknown]
  - Pyrexia [Unknown]
  - Wheezing [Unknown]
  - Atrial septal defect [Unknown]
  - Upper respiratory tract infection [Unknown]
  - Cough [Unknown]
  - Pharyngeal erythema [Unknown]
  - Pyrexia [Unknown]
  - Sneezing [Unknown]
  - Pyrexia [Unknown]
  - Dyspnoea [Unknown]
  - Stridor [Unknown]
  - Croup infectious [Unknown]
  - Pyrexia [Unknown]
  - Dermatitis diaper [Unknown]
  - Foetal exposure during pregnancy [Unknown]
  - Viral infection [Unknown]
  - Otitis media acute [Unknown]
  - Weight gain poor [Unknown]
  - Eye discharge [Unknown]
  - Lung infiltration [Unknown]
  - Chest X-ray abnormal [Unknown]
  - Upper respiratory tract infection [Unknown]
  - Decreased activity [Unknown]
  - Rhinorrhoea [Unknown]
  - Dysphonia [Unknown]
  - Teething [Unknown]

NARRATIVE: CASE EVENT DATE: 20150529
